FAERS Safety Report 22095607 (Version 1)
Quarter: 2023Q1

REPORT INFORMATION
  Report Type: Spontaneous
  Country: MA (occurrence: MA)
  Receive Date: 20230314
  Receipt Date: 20230314
  Transmission Date: 20230418
  Serious: No
  Sender: FDA-Public Use
  Company Number: MA-PFIZER INC-PV202300045159

PATIENT
  Age: 7 Year
  Sex: Female

DRUGS (1)
  1. GENOTROPIN [Suspect]
     Active Substance: SOMATROPIN
     Indication: Turner^s syndrome
     Dosage: 1 MG, DAILY (1 MG / EVERYDAY)
     Route: 058
     Dates: start: 20210307, end: 202302

REACTIONS (3)
  - Device issue [Unknown]
  - Device mechanical issue [Unknown]
  - Device information output issue [Unknown]
